FAERS Safety Report 6035179-1 (Version None)
Quarter: 2009Q1

REPORT INFORMATION
  Report Type: 
  Country: None (occurrence: None)
  Receive Date: 20090109
  Receipt Date: 20081231
  Transmission Date: 20090719
  Serious: Yes (Hospitalization, Disabling, Other)
  Sender: FDA-Public Use
  Company Number: 100#03#2009-00013

PATIENT
  Age: 33 Year
  Sex: Male

DRUGS (9)
  1. FLUCONAZOLE [Suspect]
     Indication: PRODUCTIVE COUGH
     Dosage: 50 MG ONCE DAILY PARENTERAL
     Route: 051
     Dates: start: 20081209, end: 20081209
  2. AMOXICILLIN (AMOXICILLIN TRIHYDATE) [Concomitant]
  3. CLARITHROMYCIN [Concomitant]
  4. CO-AMOXICLAV (AMOXICILLIN, CLAVULANIC ACID) [Concomitant]
  5. CYCLIZINE [Concomitant]
  6. ENOXAPARIN SODIUM [Concomitant]
  7. METHADONE HCL [Concomitant]
  8. SODIUM CHLORIDE [Concomitant]
  9. ACETAMINOPHEN [Concomitant]

REACTIONS (2)
  - ERYTHEMA [None]
  - URTICARIA [None]
